FAERS Safety Report 6693323-7 (Version None)
Quarter: 2010Q2

REPORT INFORMATION
  Report Type: 
  Country: None (occurrence: None)
  Receive Date: 20100421
  Receipt Date: 20100421
  Transmission Date: 20101027
  Serious: Yes (Other)
  Sender: FDA-Public Use
  Company Number: None

PATIENT
  Sex: Female
  Weight: 56.246 kg

DRUGS (5)
  1. FENTANYL [Suspect]
     Indication: PAIN
     Dosage: 50MG/100MG 1 EVERY 3 DAYS
     Dates: start: 20070101, end: 20100101
  2. FENTANYL [Suspect]
     Indication: ROAD TRAFFIC ACCIDENT
     Dosage: 50MG/100MG 1 EVERY 3 DAYS
     Dates: start: 20070101, end: 20100101
  3. FENTANYL [Suspect]
  4. FENTANYL [Suspect]
  5. FENTANYL [Suspect]

REACTIONS (8)
  - ABDOMINAL DISCOMFORT [None]
  - HEADACHE [None]
  - NAUSEA [None]
  - NO THERAPEUTIC RESPONSE [None]
  - PAIN [None]
  - PRODUCT ADHESION ISSUE [None]
  - PRODUCT SUBSTITUTION ISSUE [None]
  - TREMOR [None]
